FAERS Safety Report 4272519-8 (Version None)
Quarter: 2004Q1

REPORT INFORMATION
  Report Type: 
  Country: None (occurrence: None)
  Receive Date: 20040114
  Receipt Date: 20040107
  Transmission Date: 20041129
  Serious: Yes (Other)
  Sender: FDA-Public Use
  Company Number: 200410106BCC

PATIENT
  Age: 85 Year
  Sex: Female
  Weight: 58.9676 kg

DRUGS (2)
  1. ALEVE (CAPLET) [Suspect]
     Indication: ARTHRALGIA
     Dosage: 440 MG, BID, ORAL
     Route: 048
     Dates: start: 20031227
  2. ATENOLOL [Concomitant]

REACTIONS (1)
  - BLOOD PRESSURE SYSTOLIC INCREASED [None]
